FAERS Safety Report 11236925 (Version 1)
Quarter: 2015Q3

REPORT INFORMATION
  Report Type: Spontaneous
  Country: US (occurrence: US)
  Receive Date: 20150703
  Receipt Date: 20150703
  Transmission Date: 20151125
  Serious: No
  Sender: FDA-Public Use
  Company Number: US-TAKEDA-2015TUS006805

PATIENT
  Age: 31 Year
  Sex: Female
  Weight: 98.87 kg

DRUGS (2)
  1. SPRINTEC [Concomitant]
     Active Substance: ETHINYL ESTRADIOL\NORGESTIMATE
     Indication: MENORRHAGIA
     Dosage: UNK, QD
     Dates: start: 20150519
  2. CONTRAVE [Suspect]
     Active Substance: BUPROPION HYDROCHLORIDE\NALTREXONE HYDROCHLORIDE
     Indication: OBESITY
     Dosage: 1 TABLET, QD
     Route: 048
     Dates: start: 20150519, end: 20150519

REACTIONS (8)
  - Chest pain [Not Recovered/Not Resolved]
  - Dizziness [Recovered/Resolved]
  - Abasia [Unknown]
  - Feeling hot [Unknown]
  - Aphasia [Unknown]
  - Headache [Not Recovered/Not Resolved]
  - Tremor [Recovered/Resolved]
  - Nausea [Unknown]

NARRATIVE: CASE EVENT DATE: 20150519
